FAERS Safety Report 9495185 (Version 1)
Quarter: 2013Q3

REPORT INFORMATION
  Report Type: Report from Study
  Country: DE (occurrence: DE)
  Receive Date: 20130903
  Receipt Date: 20130903
  Transmission Date: 20140515
  Serious: Yes (Other)
  Sender: FDA-Public Use
  Company Number: DE-SANOFI-AVENTIS-2013SA084658

PATIENT
  Age: 84 Year
  Sex: Female
  Weight: 74 kg

DRUGS (5)
  1. LANTUS [Suspect]
     Indication: TYPE 2 DIABETES MELLITUS
     Route: 058
     Dates: start: 20110727
  2. ANTIHYPERTENSIVES [Concomitant]
  3. OTHER LIPID MODIFYING AGENTS [Concomitant]
  4. PLATELET AGGREGATION INHIBITORS [Concomitant]
  5. ORAL ANTIDIABETICS [Concomitant]
     Indication: TYPE 2 DIABETES MELLITUS
     Route: 048

REACTIONS (1)
  - Myocardial infarction [Unknown]
